FAERS Safety Report 20179378 (Version 1)
Quarter: 2021Q4

REPORT INFORMATION
  Report Type: Report from Study
  Country: US (occurrence: US)
  Receive Date: 20211214
  Receipt Date: 20211214
  Transmission Date: 20220303
  Serious: No
  Sender: FDA-Public Use
  Company Number: US-Ipsen Biopharmaceuticals, Inc.-2021-30774

PATIENT
  Age: 66 Year
  Sex: Female

DRUGS (1)
  1. SOMATULINE DEPOT [Suspect]
     Active Substance: LANREOTIDE ACETATE
     Indication: Carcinoid syndrome
     Dosage: DOSE AND STRENGTH: 120MG
     Route: 058
     Dates: start: 201605

REACTIONS (7)
  - Gastrointestinal disorder [Unknown]
  - Ulcer [Recovered/Resolved]
  - Nausea [Unknown]
  - Flushing [Unknown]
  - Diarrhoea [Unknown]
  - Dehydration [Unknown]
  - Inappropriate schedule of product administration [Unknown]
